FAERS Safety Report 18987385 (Version 1)
Quarter: 2021Q1

REPORT INFORMATION
  Report Type: Spontaneous
  Country: US (occurrence: US)
  Receive Date: 20210309
  Receipt Date: 20210309
  Transmission Date: 20210420
  Serious: Yes (Hospitalization)
  Sender: FDA-Public Use
  Company Number: None

PATIENT
  Sex: Male
  Weight: 78.4 kg

DRUGS (3)
  1. IFOSFAMIDE. [Suspect]
     Active Substance: IFOSFAMIDE
     Dates: end: 20210228
  2. TAXOL [Suspect]
     Active Substance: PACLITAXEL
     Dates: end: 20210224
  3. CISPLATIN. [Suspect]
     Active Substance: CISPLATIN

REACTIONS (4)
  - Pyrexia [None]
  - Chills [None]
  - Sinus disorder [None]
  - Neutropenia [None]

NARRATIVE: CASE EVENT DATE: 20210307
